FAERS Safety Report 6010048-1 (Version None)
Quarter: 2008Q4

REPORT INFORMATION
  Report Type: 
  Country: None (occurrence: None)
  Receive Date: 20081218
  Receipt Date: 20081202
  Transmission Date: 20090506
  Serious: Yes (Hospitalization)
  Sender: FDA-Public Use
  Company Number: US-PFIZER INC-2004099102

PATIENT
  Sex: Male
  Weight: 110 kg

DRUGS (12)
  1. INHALED HUMAN INSULIN [Suspect]
     Indication: TYPE 2 DIABETES MELLITUS
     Dosage: 6 MG, 3X/DAY
     Route: 055
     Dates: start: 20021024, end: 20041018
  2. ISOPHANE INSULIN [Suspect]
     Indication: TYPE 2 DIABETES MELLITUS
     Dosage: 26 IU, 1X/DAY
     Route: 058
     Dates: start: 20021024
  3. *INSULIN LISPRO [Suspect]
     Indication: TYPE 2 DIABETES MELLITUS
     Dosage: FREQUENCY:TID;INTERVAL:QD
     Route: 058
     Dates: start: 20041019
  4. ALLOPURINOL [Concomitant]
     Route: 048
     Dates: start: 19910601
  5. NICARDIPINE [Concomitant]
     Route: 048
     Dates: start: 19800401
  6. BUPROPION HCL [Concomitant]
     Route: 048
     Dates: start: 20010301
  7. LEVOTHYROXINE SODIUM [Concomitant]
     Route: 048
     Dates: start: 19810501
  8. CETIRIZINE HYDROCHLORIDE [Concomitant]
     Route: 048
     Dates: start: 20010501
  9. ATORVASTATIN CALCIUM [Concomitant]
     Route: 048
     Dates: start: 19920601
  10. TAMSULOSIN HCL [Concomitant]
     Route: 048
     Dates: start: 19980401
  11. GENERAL NUTRIENTS [Concomitant]
     Route: 048
     Dates: start: 19950601
  12. FENOFIBRATE [Concomitant]
     Route: 048
     Dates: start: 20021001

REACTIONS (1)
  - DEEP VEIN THROMBOSIS [None]
